FAERS Safety Report 6319705-0 (Version None)
Quarter: 2009Q3

REPORT INFORMATION
  Report Type: 
  Country: None (occurrence: None)
  Receive Date: 20090822
  Receipt Date: 20080924
  Transmission Date: 20100115
  Serious: No
  Sender: FDA-Public Use
  Company Number: US-ABBOTT-08P-163-0477352-00

PATIENT
  Age: 60 Year
  Sex: Male

DRUGS (2)
  1. NIASPAN [Suspect]
     Indication: DRUG USE FOR UNKNOWN INDICATION
     Route: 048
     Dates: start: 20080801, end: 20080901
  2. UNKNOWN BLOOD PRESSURE PILL [Concomitant]
     Indication: HYPERTENSION
     Route: 048

REACTIONS (5)
  - FORMICATION [None]
  - HOT FLUSH [None]
  - NERVOUSNESS [None]
  - TEMPERATURE INTOLERANCE [None]
  - TREMOR [None]
